FAERS Safety Report 9207365 (Version 1)
Quarter: 2013Q1

REPORT INFORMATION
  Report Type: Spontaneous
  Country: US (occurrence: None)
  Receive Date: 20120718
  Receipt Date: 20120718
  Transmission Date: 20140127
  Serious: Yes (Hospitalization)
  Sender: FDA-Public Use
  Company Number: WAES111OUSA04471

PATIENT
  Sex: 0

DRUGS (1)
  1. SINEMET CR [Suspect]
     Dosage: UNK/UNK/PO
     Route: 048

REACTIONS (1)
  - Malaise [None]
